FAERS Safety Report 20972944 (Version 29)
Quarter: 2025Q1

REPORT INFORMATION
  Report Type: Spontaneous
  Country: CA (occurrence: CA)
  Receive Date: 20220617
  Receipt Date: 20250213
  Transmission Date: 20250408
  Serious: Yes (Other)
  Sender: CELLTRION
  Company Number: CA-CELLTRION INC.-2020CA034896

PATIENT

DRUGS (90)
  1. INFLECTRA [Suspect]
     Active Substance: INFLIXIMAB-DYYB
     Indication: Crohn^s disease
     Route: 042
     Dates: start: 20201210
  2. INFLECTRA [Suspect]
     Active Substance: INFLIXIMAB-DYYB
     Route: 042
     Dates: start: 20201222, end: 20201222
  3. INFLECTRA [Suspect]
     Active Substance: INFLIXIMAB-DYYB
     Route: 042
     Dates: start: 20210121
  4. INFLECTRA [Suspect]
     Active Substance: INFLIXIMAB-DYYB
     Route: 042
     Dates: start: 20210121
  5. INFLECTRA [Suspect]
     Active Substance: INFLIXIMAB-DYYB
     Route: 042
     Dates: start: 20210318, end: 20210318
  6. INFLECTRA [Suspect]
     Active Substance: INFLIXIMAB-DYYB
     Route: 042
     Dates: start: 20210511, end: 20210511
  7. INFLECTRA [Suspect]
     Active Substance: INFLIXIMAB-DYYB
     Route: 042
     Dates: start: 20210511, end: 20210511
  8. INFLECTRA [Suspect]
     Active Substance: INFLIXIMAB-DYYB
     Route: 042
     Dates: start: 20210706
  9. INFLECTRA [Suspect]
     Active Substance: INFLIXIMAB-DYYB
     Route: 042
     Dates: start: 20210831
  10. INFLECTRA [Suspect]
     Active Substance: INFLIXIMAB-DYYB
     Route: 042
     Dates: start: 20211028, end: 20211028
  11. INFLECTRA [Suspect]
     Active Substance: INFLIXIMAB-DYYB
     Route: 042
     Dates: start: 20211222, end: 20211222
  12. INFLECTRA [Suspect]
     Active Substance: INFLIXIMAB-DYYB
     Route: 042
     Dates: start: 20220216
  13. INFLECTRA [Suspect]
     Active Substance: INFLIXIMAB-DYYB
     Route: 042
     Dates: start: 20220412, end: 20220412
  14. INFLECTRA [Suspect]
     Active Substance: INFLIXIMAB-DYYB
     Route: 042
     Dates: start: 20220607, end: 20220607
  15. INFLECTRA [Suspect]
     Active Substance: INFLIXIMAB-DYYB
     Route: 042
     Dates: start: 20220802
  16. INFLECTRA [Suspect]
     Active Substance: INFLIXIMAB-DYYB
     Route: 042
     Dates: start: 20220926
  17. INFLECTRA [Suspect]
     Active Substance: INFLIXIMAB-DYYB
     Route: 042
     Dates: start: 20221125
  18. INFLECTRA [Suspect]
     Active Substance: INFLIXIMAB-DYYB
     Route: 042
     Dates: start: 20221125
  19. INFLECTRA [Suspect]
     Active Substance: INFLIXIMAB-DYYB
     Route: 042
     Dates: start: 20230127
  20. INFLECTRA [Suspect]
     Active Substance: INFLIXIMAB-DYYB
     Route: 042
     Dates: start: 20230322
  21. INFLECTRA [Suspect]
     Active Substance: INFLIXIMAB-DYYB
     Route: 042
     Dates: start: 20230517
  22. INFLECTRA [Suspect]
     Active Substance: INFLIXIMAB-DYYB
     Route: 042
     Dates: start: 20230724
  23. INFLECTRA [Suspect]
     Active Substance: INFLIXIMAB-DYYB
     Route: 042
     Dates: start: 20230724
  24. INFLECTRA [Suspect]
     Active Substance: INFLIXIMAB-DYYB
     Route: 042
     Dates: start: 20230918
  25. INFLECTRA [Suspect]
     Active Substance: INFLIXIMAB-DYYB
     Route: 042
     Dates: start: 20231114
  26. INFLECTRA [Suspect]
     Active Substance: INFLIXIMAB-DYYB
     Route: 042
     Dates: start: 20240109
  27. INFLECTRA [Suspect]
     Active Substance: INFLIXIMAB-DYYB
     Route: 042
     Dates: start: 20240305
  28. INFLECTRA [Suspect]
     Active Substance: INFLIXIMAB-DYYB
     Route: 042
     Dates: start: 20240305
  29. INFLECTRA [Suspect]
     Active Substance: INFLIXIMAB-DYYB
     Route: 042
     Dates: start: 20240430
  30. INFLECTRA [Suspect]
     Active Substance: INFLIXIMAB-DYYB
     Route: 042
     Dates: start: 20240430
  31. INFLECTRA [Suspect]
     Active Substance: INFLIXIMAB-DYYB
     Route: 042
     Dates: start: 20240625
  32. INFLECTRA [Suspect]
     Active Substance: INFLIXIMAB-DYYB
     Route: 042
     Dates: start: 20240820
  33. INFLECTRA [Suspect]
     Active Substance: INFLIXIMAB-DYYB
     Route: 042
     Dates: start: 20241015
  34. INFLECTRA [Suspect]
     Active Substance: INFLIXIMAB-DYYB
     Route: 042
     Dates: start: 20241210
  35. INFLECTRA [Suspect]
     Active Substance: INFLIXIMAB-DYYB
     Route: 042
     Dates: start: 20250204
  36. ACETAMINOPHEN [Concomitant]
     Active Substance: ACETAMINOPHEN
     Indication: Premedication
     Route: 048
     Dates: start: 20201222, end: 20201222
  37. ACETAMINOPHEN [Concomitant]
     Active Substance: ACETAMINOPHEN
     Route: 048
     Dates: start: 20210121, end: 20210121
  38. ACETAMINOPHEN [Concomitant]
     Active Substance: ACETAMINOPHEN
     Dates: start: 20210511, end: 20210511
  39. ACETAMINOPHEN [Concomitant]
     Active Substance: ACETAMINOPHEN
     Dates: start: 20211028, end: 20211028
  40. ACETAMINOPHEN [Concomitant]
     Active Substance: ACETAMINOPHEN
     Route: 048
     Dates: start: 20220607, end: 20220607
  41. ACETAMINOPHEN [Concomitant]
     Active Substance: ACETAMINOPHEN
     Route: 048
     Dates: start: 20230127
  42. AMITRIPTYLINE [Concomitant]
     Active Substance: AMITRIPTYLINE
  43. ATENOLOL [Concomitant]
     Active Substance: ATENOLOL
     Route: 065
  44. BECLO AQ [Concomitant]
  45. CANNABIDIOL\HERBALS [Concomitant]
     Active Substance: CANNABIDIOL\HERBALS
     Route: 065
  46. CANNABIDIOL\HERBALS [Concomitant]
     Active Substance: CANNABIDIOL\HERBALS
  47. CANNABIDIOL\HERBALS [Concomitant]
     Active Substance: CANNABIDIOL\HERBALS
     Route: 065
  48. CINNAMON [Concomitant]
     Active Substance: CINNAMON
     Route: 065
  49. CINNAMON [Concomitant]
     Active Substance: CINNAMON
  50. CINNAMON [Concomitant]
     Active Substance: CINNAMON
     Route: 065
  51. DIPHENHYDRAMINE [Concomitant]
     Active Substance: DIPHENHYDRAMINE
     Indication: Premedication
     Route: 048
     Dates: start: 20201222, end: 20201222
  52. DIPHENHYDRAMINE [Concomitant]
     Active Substance: DIPHENHYDRAMINE
     Route: 048
     Dates: start: 20210121, end: 20210121
  53. DIPHENHYDRAMINE [Concomitant]
     Active Substance: DIPHENHYDRAMINE
     Dates: start: 20210511, end: 20210511
  54. DIPHENHYDRAMINE [Concomitant]
     Active Substance: DIPHENHYDRAMINE
     Dates: start: 20211028, end: 20211028
  55. DIPHENHYDRAMINE [Concomitant]
     Active Substance: DIPHENHYDRAMINE
     Route: 048
     Dates: start: 20220607, end: 20220607
  56. DIPHENHYDRAMINE [Concomitant]
     Active Substance: DIPHENHYDRAMINE
     Route: 048
     Dates: start: 20230127
  57. ALLOPURINOL [Concomitant]
     Active Substance: ALLOPURINOL
     Route: 065
  58. IMURAN [Concomitant]
     Active Substance: AZATHIOPRINE
  59. IMURAN [Concomitant]
     Active Substance: AZATHIOPRINE
     Route: 065
  60. LIPITOR [Concomitant]
     Active Substance: ATORVASTATIN CALCIUM
     Route: 065
  61. LORAZEPAM [Concomitant]
     Active Substance: LORAZEPAM
     Route: 065
  62. LORAZEPAM [Concomitant]
     Active Substance: LORAZEPAM
  63. LORAZEPAM [Concomitant]
     Active Substance: LORAZEPAM
     Route: 065
  64. MAGNESIUM CITRATE [Concomitant]
     Active Substance: MAGNESIUM CITRATE
     Route: 065
  65. MAGNESIUM OXIDE [Concomitant]
     Active Substance: MAGNESIUM OXIDE
  66. OMEGA 3 6 9 [OMEGA 9 FATTY ACIDS;OMEGA-3 FATTY ACIDS;OMEGA-6 FATTY ACI [Concomitant]
  67. OMEGA 3 6 9 [OMEGA 9 FATTY ACIDS;OMEGA-3 FATTY ACIDS;OMEGA-6 FATTY ACI [Concomitant]
  68. OMEGA 3 6 9 [OMEGA 9 FATTY ACIDS;OMEGA-3 FATTY ACIDS;OMEGA-6 FATTY ACI [Concomitant]
     Route: 065
  69. PANTOPRAZOLE SODIUM [Concomitant]
     Active Substance: PANTOPRAZOLE SODIUM
     Route: 065
  70. PERINDOPRIL [Concomitant]
     Active Substance: PERINDOPRIL
     Route: 065
  71. PERINDOPRIL ERBUMINE [Concomitant]
     Active Substance: PERINDOPRIL ERBUMINE
  72. PREDNISONE [Concomitant]
     Active Substance: PREDNISONE
  73. PREDNISONE [Concomitant]
     Active Substance: PREDNISONE
  74. PREGABALIN [Concomitant]
     Active Substance: PREGABALIN
     Route: 065
  75. SYNTHROID [Concomitant]
     Active Substance: LEVOTHYROXINE SODIUM
  76. SYNTHROID [Concomitant]
     Active Substance: LEVOTHYROXINE SODIUM
  77. SYNTHROID [Concomitant]
     Active Substance: LEVOTHYROXINE SODIUM
     Route: 065
  78. CANNABIS SATIVA FLOWERING TOP [Concomitant]
     Active Substance: CANNABIS SATIVA FLOWERING TOP
  79. CANNABIS SATIVA FLOWERING TOP [Concomitant]
     Active Substance: CANNABIS SATIVA FLOWERING TOP
  80. CANNABIS SATIVA FLOWERING TOP [Concomitant]
     Active Substance: CANNABIS SATIVA FLOWERING TOP
     Route: 065
  81. TUMS [Concomitant]
     Active Substance: CALCIUM CARBONATE
  82. TUMS [Concomitant]
     Active Substance: CALCIUM CARBONATE
     Route: 065
  83. TYLENOL [Concomitant]
     Active Substance: ACETAMINOPHEN
  84. TYLENOL [Concomitant]
     Active Substance: ACETAMINOPHEN
     Route: 065
  85. VITAMIN B12 [Concomitant]
     Active Substance: CYANOCOBALAMIN
  86. VITAMIN B12 [Concomitant]
     Active Substance: CYANOCOBALAMIN
  87. VITAMIN B12 [Concomitant]
     Active Substance: CYANOCOBALAMIN
  88. VITAMIN B12 [Concomitant]
     Active Substance: CYANOCOBALAMIN
     Route: 065
  89. VITAMIN B6 [Concomitant]
     Active Substance: PYRIDOXINE HYDROCHLORIDE
     Route: 065
  90. VITAMIN D3 [Concomitant]
     Active Substance: CHOLECALCIFEROL
     Route: 065

REACTIONS (30)
  - Uveitis [Recovered/Resolved]
  - Blood pressure increased [Not Recovered/Not Resolved]
  - Sinusitis [Recovering/Resolving]
  - Condition aggravated [Recovering/Resolving]
  - Nasal congestion [Unknown]
  - Sinus congestion [Unknown]
  - Malaise [Unknown]
  - Stress [Unknown]
  - Aphthous ulcer [Recovered/Resolved]
  - Erythema nodosum [Recovered/Resolved]
  - Rhinorrhoea [Not Recovered/Not Resolved]
  - Blood pressure systolic increased [Not Recovered/Not Resolved]
  - Blood pressure fluctuation [Unknown]
  - Nausea [Unknown]
  - Headache [Unknown]
  - Nasopharyngitis [Unknown]
  - Abdominal discomfort [Unknown]
  - Fatigue [Not Recovered/Not Resolved]
  - Arthralgia [Recovered/Resolved]
  - Abscess [Recovered/Resolved]
  - Oropharyngeal pain [Not Recovered/Not Resolved]
  - Oral herpes [Not Recovered/Not Resolved]
  - Eye infection [Not Recovered/Not Resolved]
  - Viral infection [Not Recovered/Not Resolved]
  - Fungal infection [Recovering/Resolving]
  - Urinary tract infection [Recovering/Resolving]
  - Cystitis [Recovering/Resolving]
  - Inappropriate schedule of product administration [Unknown]
  - Off label use [Unknown]
  - Intentional product use issue [Unknown]

NARRATIVE: CASE EVENT DATE: 20201222
